FAERS Safety Report 6045833-3 (Version None)
Quarter: 2009Q1

REPORT INFORMATION
  Report Type: 
  Country: None (occurrence: None)
  Receive Date: 20090121
  Receipt Date: 20090116
  Transmission Date: 20090719
  Serious: No
  Sender: FDA-Public Use
  Company Number: US-B.I. PHARMACEUTICALS,INC./RIDGEFIELD-2009-BP-00626BP

PATIENT
  Sex: Male

DRUGS (9)
  1. SPIRIVA [Suspect]
     Indication: EMPHYSEMA
     Dosage: 18MCG
     Route: 055
     Dates: start: 20050101
  2. XOPENEX [Concomitant]
     Indication: EMPHYSEMA
     Route: 048
  3. NEXIUM [Concomitant]
     Indication: GASTROOESOPHAGEAL REFLUX DISEASE
     Dosage: 40MG
     Route: 048
  4. LASIX [Concomitant]
     Indication: HYPERTENSION
     Dosage: 20MG
     Route: 048
  5. K+ [Concomitant]
     Indication: HYPERTENSION
     Dosage: 20MG
     Route: 048
  6. FENTANYL [Concomitant]
     Dosage: 25MG
     Route: 062
  7. PROZAC [Concomitant]
     Indication: DEPRESSION
     Dosage: 40MG
     Route: 048
  8. DILTIAZEM CD [Concomitant]
     Indication: HYPERTENSION
     Dosage: 120MG
     Route: 048
  9. ANDRODERM [Concomitant]
     Dosage: 5MG
     Route: 062

REACTIONS (1)
  - DRY MOUTH [None]
